FAERS Safety Report 8495749-8 (Version None)
Quarter: 2012Q3

REPORT INFORMATION
  Report Type: 
  Country: None (occurrence: None)
  Receive Date: 20120709
  Receipt Date: 20120705
  Transmission Date: 20120928
  Serious: Yes (Other)
  Sender: FDA-Public Use
  Company Number: GB-ROCHE-1084859

PATIENT

DRUGS (2)
  1. LUCENTIS [Suspect]
     Indication: MACULOPATHY
     Route: 050
     Dates: start: 20110801
  2. PRESERVISION AREDS [Concomitant]

REACTIONS (5)
  - RETINAL OEDEMA [None]
  - EYE PAIN [None]
  - OCULAR HYPERAEMIA [None]
  - ABDOMINAL DISCOMFORT [None]
  - FATIGUE [None]
